FAERS Safety Report 4588737-5 (Version None)
Quarter: 2005Q1

REPORT INFORMATION
  Report Type: 
  Country: None (occurrence: None)
  Receive Date: 20050215
  Receipt Date: 20050215
  Transmission Date: 20050727
  Serious: Yes (Hospitalization)
  Sender: FDA-Public Use
  Company Number: None

PATIENT
  Age: 53 Year
  Sex: Male
  Weight: 100 kg

DRUGS (10)
  1. NATALIZUMAB  300MG   BIOGEN IDEC + ELAN CORP [Suspect]
     Indication: MULTIPLE SCLEROSIS
     Dosage: 300MG   MONTHLY INTRAVENOUS
     Route: 042
     Dates: start: 20050101, end: 20050203
  2. VENLAFAXIN [Concomitant]
  3. SIMVASTATIN [Concomitant]
  4. LISINOPRIL [Concomitant]
  5. FELODIPINE [Concomitant]
  6. BACLOFEN [Concomitant]
  7. ATENOLOL [Concomitant]
  8. ASPIRIN [Concomitant]
  9. INTERFERON BETA-1A  -AVONEX- [Concomitant]
  10. GABAPENTIN [Concomitant]

REACTIONS (5)
  - BLOOD PRESSURE DECREASED [None]
  - DYSPNOEA [None]
  - FLUSHING [None]
  - HEART RATE INCREASED [None]
  - HYPERHIDROSIS [None]
